FAERS Safety Report 22253339 (Version 2)
Quarter: 2023Q2

REPORT INFORMATION
  Report Type: Spontaneous
  Country: US (occurrence: None)
  Receive Date: 20230426
  Receipt Date: 20230602
  Transmission Date: 20230721
  Serious: Yes (Hospitalization, Other)
  Sender: FDA-Public Use
  Company Number: US-Hikma Pharmaceuticals USA Inc.-US-H14001-23-01217

PATIENT
  Age: 12 Year
  Sex: Female
  Weight: 38.9 kg

DRUGS (6)
  1. MERCAPTOPURINE [Suspect]
     Active Substance: MERCAPTOPURINE
     Indication: Acute lymphocytic leukaemia
     Route: 048
     Dates: start: 20230210, end: 20230326
  2. MERCAPTOPURINE [Suspect]
     Active Substance: MERCAPTOPURINE
     Route: 048
     Dates: start: 20230329
  3. METHOTREXATE [Suspect]
     Active Substance: METHOTREXATE
     Indication: Acute lymphocytic leukaemia
     Dosage: UNKNOWN
     Route: 037
  4. LEUCOVORIN [Suspect]
     Active Substance: LEUCOVORIN
     Indication: Acute lymphocytic leukaemia
     Dosage: UNKNOWN
     Route: 065
     Dates: start: 20230329
  5. RUXOLITINIB [Suspect]
     Active Substance: RUXOLITINIB
     Indication: Acute lymphocytic leukaemia
     Route: 048
     Dates: start: 20230315, end: 20230326
  6. VINCRISTINE [Suspect]
     Active Substance: VINCRISTINE
     Indication: Acute lymphocytic leukaemia
     Dosage: UNKNOWN
     Route: 042

REACTIONS (22)
  - Urinary incontinence [Unknown]
  - Pollakiuria [Unknown]
  - Dehydration [Recovering/Resolving]
  - Sepsis [Unknown]
  - Dysuria [Unknown]
  - Urosepsis [Unknown]
  - Pyelonephritis [Unknown]
  - Bacteraemia [Unknown]
  - Pyrexia [Recovering/Resolving]
  - Gastroenteritis viral [Unknown]
  - Viral infection [Unknown]
  - Escherichia test positive [Unknown]
  - Nausea [Unknown]
  - Urinary tract infection [Not Recovered/Not Resolved]
  - Vomiting [Unknown]
  - Diarrhoea [Unknown]
  - Tachycardia [Unknown]
  - Oral pain [Unknown]
  - Cough [Unknown]
  - Herpes simplex test positive [Unknown]
  - Pulmonary oedema [Unknown]
  - Pleural effusion [Unknown]

NARRATIVE: CASE EVENT DATE: 20230324
